FAERS Safety Report 4421702-7 (Version None)
Quarter: 2004Q3

REPORT INFORMATION
  Report Type: 
  Country: None (occurrence: None)
  Receive Date: 20040804
  Receipt Date: 20040729
  Transmission Date: 20050211
  Serious: Yes (Hospitalization)
  Sender: FDA-Public Use
  Company Number: A001-002-006165

PATIENT
  Age: 86 Year
  Sex: Female
  Weight: 64 kg

DRUGS (8)
  1. ARICEPT [Suspect]
     Dosage: SEE IMAGE
     Route: 048
     Dates: start: 20010404, end: 20011031
  2. ARICEPT [Suspect]
     Dosage: SEE IMAGE
     Route: 048
     Dates: start: 20011101
  3. GINGKO BILOBA             (GINKGO BILOBA) [Concomitant]
  4. VIOXX [Concomitant]
  5. GLUCOSAMINE         (GLUCOSAMINE) [Concomitant]
  6. ATENOLOL [Concomitant]
  7. DIGOXIN [Concomitant]
  8. ACETYLSALICYLIC ACID SRT [Concomitant]

REACTIONS (5)
  - CARDIAC DISORDER [None]
  - HAEMORRHAGE [None]
  - HEART RATE IRREGULAR [None]
  - PERIORBITAL HAEMATOMA [None]
  - ROAD TRAFFIC ACCIDENT [None]
